FAERS Safety Report 26201100 (Version 1)
Quarter: 2025Q4

REPORT INFORMATION
  Report Type: Spontaneous
  Country: US (occurrence: US)
  Receive Date: 20251226
  Receipt Date: 20251226
  Transmission Date: 20260117
  Serious: No
  Sender: BRISTOL-MYERS SQUIBB COMPANY
  Company Number: US-BRISTOL-MYERS SQUIBB COMPANY-2025-172700

PATIENT
  Age: 12 Year
  Sex: Female

DRUGS (1)
  1. ORENCIA [Suspect]
     Active Substance: ABATACEPT
     Indication: Juvenile idiopathic arthritis
     Dosage: STRENGTH: 87.5MG/0.7
     Route: 058
     Dates: start: 202505

REACTIONS (1)
  - Loss of therapeutic response [Unknown]

NARRATIVE: CASE EVENT DATE: 20251101
